FAERS Safety Report 5152818-8 (Version None)
Quarter: 2006Q4

REPORT INFORMATION
  Report Type: 
  Country: None (occurrence: None)
  Receive Date: 20060918
  Receipt Date: 20060502
  Transmission Date: 20070319
  Serious: Yes (Other)
  Sender: FDA-Public Use
  Company Number: PHEH2006US05742

PATIENT
  Age: 71 Year
  Sex: Female

DRUGS (2)
  1. FEMARA [Suspect]
     Indication: BREAST CANCER
     Dosage: 2.5 MG, QD, ORAL
     Route: 048
     Dates: start: 20051120
  2. LORAZEPAM [Concomitant]

REACTIONS (4)
  - ALOPECIA [None]
  - DEPRESSION [None]
  - DRY SKIN [None]
  - NAUSEA [None]
